FAERS Safety Report 9170344 (Version 3)
Quarter: 2013Q2

REPORT INFORMATION
  Report Type: Spontaneous
  Country: US (occurrence: US)
  Receive Date: 20130319
  Receipt Date: 20130416
  Transmission Date: 20140414
  Serious: Yes (Hospitalization)
  Sender: FDA-Public Use
  Company Number: US-JNJFOC-20130306827

PATIENT
  Age: 81 Year
  Sex: Female
  Weight: 84 kg

DRUGS (6)
  1. XARELTO [Suspect]
     Indication: DEEP VEIN THROMBOSIS
     Route: 048
     Dates: start: 20121218, end: 20130227
  2. XARELTO [Suspect]
     Indication: CEREBROVASCULAR ACCIDENT PROPHYLAXIS
     Route: 048
     Dates: start: 20121218, end: 20130227
  3. XARELTO [Suspect]
     Indication: ATRIAL FIBRILLATION
     Route: 048
     Dates: start: 20121218, end: 20130227
  4. TRAMADOL [Concomitant]
     Route: 048
     Dates: start: 20111228, end: 20130227
  5. LASIX [Concomitant]
     Route: 048
     Dates: start: 20111228, end: 20130227
  6. LOVAZA [Concomitant]
     Route: 048
     Dates: start: 20111228, end: 20130227

REACTIONS (4)
  - Haemorrhage [Recovering/Resolving]
  - Haemoglobin decreased [Recovering/Resolving]
  - Gastritis [Recovering/Resolving]
  - Melaena [Recovering/Resolving]
